FAERS Safety Report 13980279 (Version 3)
Quarter: 2019Q2

REPORT INFORMATION
  Report Type: Report from Study
  Country: CH (occurrence: CH)
  Receive Date: 20170917
  Receipt Date: 20190624
  Transmission Date: 20190711
  Serious: Yes (Hospitalization, Other)
  Sender: FDA-Public Use
  Company Number: CH-BEH-2017083640

PATIENT
  Age: 54 Year
  Sex: Female

DRUGS (10)
  1. HIZENTRA [Suspect]
     Active Substance: HUMAN IMMUNOGLOBULIN G
     Dosage: 25 ML, QW, 1 INJ SITE
     Route: 058
     Dates: start: 20171004, end: 20171004
  2. HIZENTRA [Suspect]
     Active Substance: HUMAN IMMUNOGLOBULIN G
     Dosage: 25 ML, QW, 1 INJ SITE
     Route: 058
     Dates: start: 20171013, end: 20171013
  3. HIZENTRA [Suspect]
     Active Substance: HUMAN IMMUNOGLOBULIN G
     Dosage: 25 ML, QW, 1 INJ SITE DURING 3 INF.
     Route: 058
     Dates: start: 2017
  4. ELTHROCIN [Concomitant]
     Route: 065
  5. ALDACTONE [Concomitant]
     Active Substance: SPIRONOLACTONE
     Route: 065
  6. HIZENTRA [Suspect]
     Active Substance: HUMAN IMMUNOGLOBULIN G
     Indication: IMMUNODEFICIENCY
     Dosage: 25 ML, QW, 2 INJ SITES
     Route: 058
     Dates: start: 20130426
  7. EFFORTIL [Concomitant]
     Active Substance: ETILEFRINE HYDROCHLORIDE
     Route: 065
  8. METFIN [Concomitant]
     Active Substance: METFORMIN HYDROCHLORIDE
     Route: 065
  9. HIZENTRA [Suspect]
     Active Substance: HUMAN IMMUNOGLOBULIN G
     Dosage: 25 ML, QW, 2 SITES OF INJECTION
     Route: 065
     Dates: start: 2018
  10. HIZENTRA [Suspect]
     Active Substance: HUMAN IMMUNOGLOBULIN G
     Dosage: 25 ML, QW, 1 INJ SITE
     Route: 058
     Dates: start: 20170929, end: 20170929

REACTIONS (23)
  - Infusion site induration [Unknown]
  - Sjogren^s syndrome [Unknown]
  - Sinusitis [Unknown]
  - Aphonia [Unknown]
  - Cardiac disorder [Unknown]
  - Device use issue [Unknown]
  - Lung infection [Unknown]
  - Arrhythmia [Unknown]
  - Injection site pain [Unknown]
  - Pain [Unknown]
  - Injection site pruritus [Unknown]
  - Infusion site calcification [Unknown]
  - Chronic sinusitis [Recovered/Resolved]
  - Injection site swelling [Unknown]
  - Capillary fragility [Unknown]
  - Pyrexia [Unknown]
  - Migraine [Recovering/Resolving]
  - Infusion site swelling [Recovered/Resolved]
  - Nasopharyngitis [Unknown]
  - Injection site haematoma [Unknown]
  - Injection site discomfort [Unknown]
  - Cough [Recovering/Resolving]
  - Nasopharyngitis [Recovering/Resolving]

NARRATIVE: CASE EVENT DATE: 2013
